FAERS Safety Report 4716677-7 (Version None)
Quarter: 2005Q3

REPORT INFORMATION
  Report Type: 
  Country: None (occurrence: None)
  Receive Date: 20050714
  Receipt Date: 20050701
  Transmission Date: 20060218
  Serious: Yes (Hospitalization, Other)
  Sender: FDA-Public Use
  Company Number: 2005083945

PATIENT
  Age: 79 Year
  Sex: Male
  Weight: 83.0083 kg

DRUGS (18)
  1. DETROL LA [Suspect]
     Indication: ILL-DEFINED DISORDER
     Dosage: 4 MG (4 MG, 1 IN 1 D), ORAL
     Route: 048
     Dates: start: 20030101
  2. FUROSEMIDE (FUROSEMIDE) [Concomitant]
  3. AVAPRO [Concomitant]
  4. VYTORIN [Concomitant]
  5. CELEBREX [Concomitant]
  6. GEMFIBROZIL (GEMFIRBROZIL) [Concomitant]
  7. GLUCTOROL XL (GLIPIZIDE) [Concomitant]
  8. NEXIUM [Concomitant]
  9. ALL OTHER THERAPEUTIC PRODUCTS (ALL OTHER THERAPEUTIC PRODUCTS) [Concomitant]
  10. ASPIRIN [Concomitant]
  11. MULTIVITAMIN [Concomitant]
  12. FLONASE [Concomitant]
  13. CALCIUM WITH VITAMIN D (CALCIUM PHOSPHATE, CALCIUM SODIUM LACTATE, ERG [Concomitant]
  14. NITROSTAT [Concomitant]
  15. CLARITIN [Concomitant]
  16. AMBIEN [Concomitant]
  17. HYDROCODONE BITARTRATE + ACETAMINOPHEN [Concomitant]
  18. ACTONEL [Concomitant]

REACTIONS (10)
  - BLADDER DISORDER [None]
  - BODY HEIGHT DECREASED [None]
  - CONSTIPATION [None]
  - DIABETIC NEUROPATHY [None]
  - DRY MOUTH [None]
  - DYSURIA [None]
  - OSTEOPOROSIS [None]
  - PERIPHERAL VASCULAR DISORDER [None]
  - PROSTATE CANCER [None]
  - URINARY INCONTINENCE [None]
